FAERS Safety Report 7415418-2 (Version None)
Quarter: 2011Q2

REPORT INFORMATION
  Report Type: 
  Country: None (occurrence: None)
  Receive Date: 20110414
  Receipt Date: 20110408
  Transmission Date: 20111010
  Serious: Yes (Other)
  Sender: FDA-Public Use
  Company Number: US-PURDUE-USA-2010-0047324

PATIENT
  Sex: Male

DRUGS (2)
  1. OXYCODONE HCL [Suspect]
     Indication: PAIN
     Dosage: 30 MG, QID
  2. OXYCONTIN [Suspect]
     Indication: PAIN
     Dosage: 40 MG, Q12H

REACTIONS (5)
  - STOMATITIS [None]
  - THROAT IRRITATION [None]
  - CORONARY ARTERY OCCLUSION [None]
  - TONGUE EXFOLIATION [None]
  - ORAL MUCOSAL EXFOLIATION [None]
